FAERS Safety Report 24612660 (Version 2)
Quarter: 2024Q4

REPORT INFORMATION
  Report Type: Report from Study
  Country: US (occurrence: US)
  Receive Date: 20241113
  Receipt Date: 20241201
  Transmission Date: 20250114
  Serious: Yes (Other)
  Sender: ABBVIE
  Company Number: US-ABBVIE-5999727

PATIENT
  Age: 62 Year
  Sex: Female
  Weight: 117.93 kg

DRUGS (6)
  1. HUMIRA [Suspect]
     Active Substance: ADALIMUMAB
     Indication: Uveitis
     Dosage: FORM STRENGTH: 40 MG
     Route: 058
     Dates: start: 202206
  2. OMEPRAZOLE [Concomitant]
     Active Substance: OMEPRAZOLE
     Indication: Crohn^s disease
  3. LINZESS [Concomitant]
     Active Substance: LINACLOTIDE
     Indication: Crohn^s disease
  4. SULFASALAZINE [Concomitant]
     Active Substance: SULFASALAZINE
     Indication: Crohn^s disease
  5. FAMOTIDINE [Concomitant]
     Active Substance: FAMOTIDINE
     Indication: Crohn^s disease
  6. AZATHIOPRINE [Concomitant]
     Active Substance: AZATHIOPRINE
     Indication: Crohn^s disease

REACTIONS (2)
  - Gastrointestinal obstruction [Recovered/Resolved]
  - Feeling abnormal [Recovered/Resolved]

NARRATIVE: CASE EVENT DATE: 20240801
